FAERS Safety Report 24976875 (Version 2)
Quarter: 2025Q1

REPORT INFORMATION
  Report Type: Spontaneous
  Country: US (occurrence: US)
  Receive Date: 20250217
  Receipt Date: 20250218
  Transmission Date: 20250409
  Serious: Yes (Other)
  Sender: PERRIGO
  Company Number: US-PERRIGO-25US002065

PATIENT
  Sex: Female

DRUGS (1)
  1. MICONAZOLE NITRATE [Suspect]
     Active Substance: MICONAZOLE NITRATE
     Indication: Product used for unknown indication
     Route: 067

REACTIONS (2)
  - Vulvovaginal swelling [Unknown]
  - Vulvovaginal burning sensation [Unknown]
